FAERS Safety Report 4956245-5 (Version None)
Quarter: 2006Q1

REPORT INFORMATION
  Report Type: 
  Country: None (occurrence: None)
  Receive Date: 20060329
  Receipt Date: 20060314
  Transmission Date: 20060701
  Serious: Yes (Death)
  Sender: FDA-Public Use
  Company Number: US-AMGEN-STX172380

PATIENT
  Sex: Female

DRUGS (17)
  1. ENBREL [Suspect]
     Indication: PSORIASIS
     Route: 058
     Dates: start: 20030901, end: 20040501
  2. ZESTRIL [Concomitant]
     Dates: start: 20050531
  3. NORVASC [Concomitant]
     Dates: start: 20050531
  4. COREG [Concomitant]
     Dates: start: 20050531
  5. NITROGLYCERIN [Concomitant]
     Dates: start: 20050531
  6. LASIX [Concomitant]
     Dates: start: 20050629
  7. PRILOSEC [Concomitant]
     Dates: start: 20050531
  8. ASPIRIN [Concomitant]
     Dates: start: 20050531
  9. METHOTREXATE [Concomitant]
     Dates: start: 20050531
  10. MORPHINE SULFATE [Concomitant]
     Dates: start: 20050720
  11. OXYCONTIN [Concomitant]
     Dates: start: 20050720
  12. OXYCONTIN [Concomitant]
  13. DOXYCYCLINE [Concomitant]
     Dates: start: 20050629
  14. POTASSIUM CHLORIDE [Concomitant]
     Dates: start: 20050531
  15. AMBIEN [Concomitant]
     Dates: start: 20050629
  16. ISORDIL [Concomitant]
     Dates: start: 20050629
  17. GLUCOTROL [Concomitant]

REACTIONS (2)
  - CARDIAC FAILURE CONGESTIVE [None]
  - URINARY TRACT INFECTION [None]
